FAERS Safety Report 15087526 (Version 1)
Quarter: 2018Q2

REPORT INFORMATION
  Report Type: Report from Study
  Country: None (occurrence: US)
  Receive Date: 20180628
  Receipt Date: 20180628
  Transmission Date: 20180711
  Serious: Yes (Other)
  Sender: FDA-Public Use
  Company Number: US-ABBVIE-17K-163-1857167-00

PATIENT
  Age: 66 Year
  Sex: Female
  Weight: 97.61 kg

DRUGS (11)
  1. HUMIRA [Suspect]
     Active Substance: ADALIMUMAB
     Indication: RHEUMATOID ARTHRITIS
     Route: 058
     Dates: start: 201611, end: 201801
  2. ADDERALL [Concomitant]
     Active Substance: AMPHETAMINE ASPARTATE\AMPHETAMINE SULFATE\DEXTROAMPHETAMINE SACCHARATE\DEXTROAMPHETAMINE SULFATE
     Indication: PRODUCT USED FOR UNKNOWN INDICATION
  3. XANAX [Concomitant]
     Active Substance: ALPRAZOLAM
     Indication: TINNITUS
  4. ZYPREXA [Concomitant]
     Active Substance: OLANZAPINE
     Indication: TINNITUS
  5. CLONIDINE. [Suspect]
     Active Substance: CLONIDINE
     Indication: HYPERTENSION
     Route: 065
  6. ORENCIA [Suspect]
     Active Substance: ABATACEPT
     Indication: PSORIATIC ARTHROPATHY
     Route: 065
     Dates: start: 20180619
  7. VITAMIN B2 [Concomitant]
     Active Substance: RIBOFLAVIN
     Indication: VITAMIN SUPPLEMENTATION
  8. SUPER B COMPLEX [Concomitant]
     Active Substance: CYANOCOBALAMIN\DEXPANTHENOL\NIACINAMIDE\PYRIDOXINE HYDROCHLORIDE\RIBOFLAVIN 5^-PHOSPHATE SODIUM\THIAMINE HYDROCHLORIDE\VITAMIN B COMPLEX
     Indication: PRODUCT USED FOR UNKNOWN INDICATION
  9. HUMIRA [Suspect]
     Active Substance: ADALIMUMAB
     Route: 058
     Dates: start: 201801, end: 201805
  10. PRISTIQ EXTENDED-RELEASE [Concomitant]
     Active Substance: DESVENLAFAXINE SUCCINATE
     Indication: DEPRESSION
  11. VITAMIN D3 [Concomitant]
     Active Substance: CHOLECALCIFEROL
     Indication: VITAMIN D DEFICIENCY

REACTIONS (49)
  - Fatigue [Recovered/Resolved]
  - Dry skin [Unknown]
  - Limb mass [Unknown]
  - Visual impairment [Unknown]
  - Drug effect decreased [Not Recovered/Not Resolved]
  - Pyrexia [Recovered/Resolved]
  - Hypertension [Recovering/Resolving]
  - Dysuria [Unknown]
  - Migraine [Unknown]
  - Depression [Unknown]
  - Tinnitus [Not Recovered/Not Resolved]
  - Injection site pain [Unknown]
  - Rheumatoid arthritis [Unknown]
  - Oropharyngeal pain [Not Recovered/Not Resolved]
  - Loss of personal independence in daily activities [Recovering/Resolving]
  - Joint stiffness [Unknown]
  - Arthralgia [Unknown]
  - Laryngitis [Unknown]
  - Pain in extremity [Not Recovered/Not Resolved]
  - Hearing aid user [Unknown]
  - Vestibular disorder [Unknown]
  - Sluggishness [Unknown]
  - Nervous system disorder [Unknown]
  - Hyperhidrosis [Unknown]
  - Muscle tightness [Unknown]
  - Vestibular migraine [Recovering/Resolving]
  - Muscle spasms [Recovering/Resolving]
  - Paraesthesia [Not Recovered/Not Resolved]
  - Musculoskeletal stiffness [Not Recovered/Not Resolved]
  - Headache [Not Recovered/Not Resolved]
  - Somnolence [Unknown]
  - Feeling jittery [Unknown]
  - Emotional distress [Unknown]
  - Peripheral swelling [Recovered/Resolved]
  - Drug specific antibody present [Not Recovered/Not Resolved]
  - Seizure [Not Recovered/Not Resolved]
  - Gait disturbance [Recovered/Resolved]
  - Fatigue [Unknown]
  - Pain [Unknown]
  - Injection site erythema [Unknown]
  - Psoriasis [Not Recovered/Not Resolved]
  - Vestibular disorder [Not Recovered/Not Resolved]
  - Musculoskeletal stiffness [Not Recovered/Not Resolved]
  - Hypoacusis [Unknown]
  - Swelling [Unknown]
  - Anxiety [Not Recovered/Not Resolved]
  - Pruritus [Unknown]
  - Hyperhidrosis [Recovered/Resolved]
  - Nasopharyngitis [Recovered/Resolved]

NARRATIVE: CASE EVENT DATE: 2017
